FAERS Safety Report 4867846-7 (Version None)
Quarter: 2005Q4

REPORT INFORMATION
  Report Type: 
  Country: None (occurrence: None)
  Receive Date: 20051228
  Receipt Date: 20051018
  Transmission Date: 20060501
  Serious: Yes (Life-Threatening, Hospitalization, Disabling, Other)
  Sender: FDA-Public Use
  Company Number: US-MERCK-0510USA07627

PATIENT
  Age: 76 Year
  Sex: Male

DRUGS (11)
  1. ZOCOR [Suspect]
     Indication: HYPERCHOLESTEROLAEMIA
     Route: 048
     Dates: end: 20051001
  2. ZOCOR [Suspect]
     Route: 048
  3. ZOCOR [Suspect]
     Route: 048
  4. ZOCOR [Suspect]
     Indication: HYPERLIPIDAEMIA
     Route: 048
     Dates: end: 20051001
  5. ZOCOR [Suspect]
     Route: 048
  6. ZOCOR [Suspect]
     Route: 048
  7. OMEPRAZOLE [Concomitant]
     Route: 065
  8. ASPIRIN [Concomitant]
     Route: 048
  9. RABEPRAZOLE SODIUM [Concomitant]
     Indication: GASTROOESOPHAGEAL REFLUX DISEASE
     Route: 048
  10. NASACORT [Concomitant]
     Indication: SINUSITIS
     Route: 055
     Dates: start: 20050811
  11. PRINIVIL [Concomitant]
     Indication: HYPERTENSION
     Route: 048

REACTIONS (3)
  - RENAL FAILURE ACUTE [None]
  - RESPIRATORY DISORDER [None]
  - RHABDOMYOLYSIS [None]
